FAERS Safety Report 4684251-7 (Version None)
Quarter: 2005Q2

REPORT INFORMATION
  Report Type: 
  Country: None (occurrence: None)
  Receive Date: 20050531
  Receipt Date: 20050309
  Transmission Date: 20051028
  Serious: Yes (Other)
  Sender: FDA-Public Use
  Company Number: 200511805US

PATIENT
  Age: 82 Year
  Sex: Male

DRUGS (7)
  1. LOVENOX [Suspect]
     Indication: HIP ARTHROPLASTY
     Dosage: 40 MG QD
  2. LOVENOX [Suspect]
     Indication: PROPHYLAXIS
     Dosage: 40 MG QD
  3. LOVENOX [Suspect]
     Indication: HIP ARTHROPLASTY
     Dates: start: 20050305, end: 20050306
  4. LOVENOX [Suspect]
     Indication: PROPHYLAXIS
     Dates: start: 20050305, end: 20050306
  5. BLOOD PRESSURE MEDICATION [Concomitant]
  6. CHOLESTEROL MEDICATION [Concomitant]
  7. PARACETAMOL, HYDROCODONE BITARTRATE (VICODIN) [Concomitant]

REACTIONS (3)
  - BLOOD URINE PRESENT [None]
  - ERYTHEMA [None]
  - OEDEMA PERIPHERAL [None]
